FAERS Safety Report 10759140 (Version 1)
Quarter: 2015Q1

REPORT INFORMATION
  Report Type: Report from Study
  Country: CA (occurrence: CA)
  Receive Date: 20150203
  Receipt Date: 20150203
  Transmission Date: 20150721
  Serious: Yes (Hospitalization)
  Sender: FDA-Public Use
  Company Number: CA-GILEAD-2015-0135047

PATIENT
  Age: 63 Year
  Sex: Male

DRUGS (1)
  1. SOFOSBUVIR [Suspect]
     Active Substance: SOFOSBUVIR
     Indication: HEPATITIS C
     Dosage: 400 MG, UNK
     Route: 065

REACTIONS (6)
  - Unevaluable event [Unknown]
  - Sunburn [Unknown]
  - Photosensitivity reaction [Unknown]
  - Liver disorder [Unknown]
  - Abdominal distension [Unknown]
  - Amnesia [Unknown]

NARRATIVE: CASE EVENT DATE: 201407
